FAERS Safety Report 21400181 (Version 2)
Quarter: 2022Q4

REPORT INFORMATION
  Report Type: Spontaneous
  Country: JP (occurrence: JP)
  Receive Date: 20221002
  Receipt Date: 20221016
  Transmission Date: 20230112
  Serious: Yes (Other)
  Sender: FDA-Public Use
  Company Number: JP-NOVARTISPH-NVSJ2022JP098357

PATIENT
  Age: 74 Year
  Sex: Male

DRUGS (4)
  1. ENTRESTO [Interacting]
     Active Substance: SACUBITRIL\VALSARTAN
     Indication: Hypertension
     Dosage: 200 MG
     Route: 048
  2. ENTRESTO [Interacting]
     Active Substance: SACUBITRIL\VALSARTAN
     Dosage: 400 MG
     Route: 048
  3. ANAGLIPTIN [Suspect]
     Active Substance: ANAGLIPTIN
     Indication: Diabetes mellitus
     Dosage: 100 MG
     Route: 048
  4. METFORMIN HYDROCHLORIDE [Suspect]
     Active Substance: METFORMIN HYDROCHLORIDE
     Indication: Diabetes mellitus
     Dosage: 250 MG
     Route: 048

REACTIONS (3)
  - Hypoglycaemia [Recovered/Resolved]
  - Therapeutic product effect incomplete [Unknown]
  - Drug interaction [Unknown]
